FAERS Safety Report 17461727 (Version 1)
Quarter: 2020Q1

REPORT INFORMATION
  Report Type: Spontaneous
  Country: US (occurrence: US)
  Receive Date: 20200226
  Receipt Date: 20200226
  Transmission Date: 20200409
  Serious: Yes (Hospitalization)
  Sender: FDA-Public Use
  Company Number: None

PATIENT
  Age: 40 Year
  Sex: Male
  Weight: 73.94 kg

DRUGS (4)
  1. ADRIAMYCIN 2MG/ML IV [Concomitant]
  2. EMEND 150MG IV [Concomitant]
  3. AKYNZEO [Suspect]
     Active Substance: NETUPITANT\PALONOSETRON HYDROCHLORIDE
     Dosage: ?          OTHER FREQUENCY:235-0.025 Q21DAYS;?
     Route: 042
     Dates: start: 20191106, end: 20200226
  4. CYCLOPHOSAMIDE 50MG PO [Concomitant]

REACTIONS (1)
  - Hospice care [None]
